FAERS Safety Report 9752448 (Version 3)
Quarter: 2014Q1

REPORT INFORMATION
  Report Type: Spontaneous
  Country: GB (occurrence: GB)
  Receive Date: 20131213
  Receipt Date: 20140327
  Transmission Date: 20141002
  Serious: Yes (Hospitalization)
  Sender: FDA-Public Use
  Company Number: GB-ROCHE-1319554

PATIENT
  Age: 76 Year
  Sex: Female

DRUGS (18)
  1. LUCENTIS [Suspect]
     Indication: DIABETIC RETINAL OEDEMA
     Dosage: IN LEFT EYE
     Route: 050
     Dates: start: 20130809
  2. LUCENTIS [Suspect]
     Dosage: LEFT EYE
     Route: 050
     Dates: start: 20131108
  3. LUCENTIS [Suspect]
     Route: 065
  4. DOXAZOSIN [Concomitant]
  5. CALCIUM CARBONATE [Concomitant]
  6. FOLVITE [Concomitant]
  7. IBUPROFEN [Concomitant]
  8. INSULIN ASPART [Concomitant]
  9. LANSOPRAZOLE [Concomitant]
  10. PRAVASTATIN [Concomitant]
  11. PREGABALIN [Concomitant]
  12. RAMIPRIL [Concomitant]
  13. SALBUTAMOL [Concomitant]
  14. IPRATROPIUM [Concomitant]
  15. ADCAL (UNITED KINGDOM) [Concomitant]
  16. ASPIRIN [Concomitant]
  17. CETRIZINE [Concomitant]
  18. EZETIMIBE [Concomitant]

REACTIONS (1)
  - Cerebrovascular accident [Recovered/Resolved]
